FAERS Safety Report 5873925-8 (Version None)
Quarter: 2008Q3

REPORT INFORMATION
  Report Type: 
  Country: None (occurrence: None)
  Receive Date: 20080905
  Receipt Date: 20080905
  Transmission Date: 20090109
  Serious: Yes (Hospitalization, Disabling)
  Sender: FDA-Public Use
  Company Number: None

PATIENT
  Age: 43 Year
  Sex: Female

DRUGS (12)
  1. CYTARABINE [Suspect]
     Indication: ADENOCARCINOMA
     Dosage: 100MG X 1 INTRATRACHE
     Route: 039
     Dates: start: 20080626, end: 20080626
  2. CYTARABINE [Suspect]
     Indication: METASTATIC NEOPLASM
     Dosage: 100MG X 1 INTRATRACHE
     Route: 039
     Dates: start: 20080626, end: 20080626
  3. PROCHLORPERAZINE [Concomitant]
  4. DARBEPOETIN [Concomitant]
  5. DEXAMETHASONE [Concomitant]
  6. APREPTITANT [Concomitant]
  7. CARBOPLANTIN [Concomitant]
  8. PLONOSETRON [Concomitant]
  9. RANITIDINE [Concomitant]
  10. DIPHENHYDRAMINE HCL [Concomitant]
  11. PACLITAXEL [Concomitant]
  12. ETHOTREXATE [Concomitant]

REACTIONS (2)
  - ARACHNOIDITIS [None]
  - MENTAL STATUS CHANGES [None]
